FAERS Safety Report 5565388-7 (Version None)
Quarter: 2007Q4

REPORT INFORMATION
  Report Type: 
  Country: None (occurrence: None)
  Receive Date: 20071218
  Receipt Date: 20071207
  Transmission Date: 20080405
  Serious: Yes (Other)
  Sender: FDA-Public Use
  Company Number: US-ELI_LILLY_AND_COMPANY-US200712001725

PATIENT
  Sex: Female

DRUGS (4)
  1. CYMBALTA [Suspect]
     Indication: DEPRESSION
     Dosage: 30 MG, UNK
     Dates: start: 20071001, end: 20071001
  2. CYMBALTA [Suspect]
     Dosage: 60 MG, DAILY (1/D)
     Dates: start: 20071001, end: 20071101
  3. PROZAC [Suspect]
     Indication: ANXIETY
     Dosage: 20 MG, UNK
  4. TRAZODONE HCL [Concomitant]
     Dosage: UNK, AS NEEDED

REACTIONS (10)
  - BACK INJURY [None]
  - CONCUSSION [None]
  - CONTUSION [None]
  - FEELING JITTERY [None]
  - HYPERHIDROSIS [None]
  - LOSS OF CONSCIOUSNESS [None]
  - ROAD TRAFFIC ACCIDENT [None]
  - SKELETAL INJURY [None]
  - TREMOR [None]
  - WHIPLASH INJURY [None]
